FAERS Safety Report 23296119 (Version 4)
Quarter: 2024Q1

REPORT INFORMATION
  Report Type: Spontaneous
  Country: US (occurrence: US)
  Receive Date: 20231214
  Receipt Date: 20240327
  Transmission Date: 20240410
  Serious: No
  Sender: FDA-Public Use
  Company Number: US-SA-SAC20231211001040

PATIENT
  Sex: Female
  Weight: 115 kg

DRUGS (2)
  1. DUPIXENT [Suspect]
     Active Substance: DUPILUMAB
     Indication: Asthma
     Dosage: 300 MG, QOW
     Route: 058
     Dates: start: 20231127
  2. SYNVISC [Concomitant]
     Active Substance: HYLAN G-F 20

REACTIONS (4)
  - COVID-19 [Unknown]
  - Anxiety [Unknown]
  - Pain [Unknown]
  - Malaise [Unknown]
